FAERS Safety Report 5226834-1 (Version None)
Quarter: 2007Q1

REPORT INFORMATION
  Report Type: 
  Country: None (occurrence: None)
  Receive Date: 20070130
  Receipt Date: 20070123
  Transmission Date: 20070707
  Serious: Yes (Hospitalization)
  Sender: FDA-Public Use
  Company Number: S07-USA-00084-01

PATIENT
  Age: 53 Year
  Sex: Male
  Weight: 72.5755 kg

DRUGS (7)
  1. LEXAPRO [Suspect]
     Indication: DEPRESSION
     Dosage: 10 MG QD PO
     Route: 048
     Dates: start: 20060601, end: 20060101
  2. LEXAPRO [Suspect]
     Indication: DEPRESSION
     Dosage: 20 MG QD PO
     Route: 048
     Dates: start: 20061029
  3. LUNESTA [Suspect]
     Indication: INSOMNIA
     Dosage: 3 MG QHS
     Dates: start: 20051015, end: 20060122
  4. ATIVAN [Suspect]
     Indication: DEPRESSION
     Dosage: 0.5 MG BID
     Dates: start: 20061029
  5. ASACOL [Concomitant]
  6. NEXIUM [Concomitant]
  7. LIPITOR [Concomitant]

REACTIONS (4)
  - CONDITION AGGRAVATED [None]
  - DEPRESSION [None]
  - STRESS [None]
  - THYROID CANCER [None]
